FAERS Safety Report 5753994-6 (Version None)
Quarter: 2008Q2

REPORT INFORMATION
  Report Type: 
  Country: None (occurrence: None)
  Receive Date: 20080527
  Receipt Date: 20080527
  Transmission Date: 20081010
  Serious: Yes (Hospitalization)
  Sender: FDA-Public Use
  Company Number: None

PATIENT
  Age: 59 Year
  Sex: Female
  Weight: 51.6 kg

DRUGS (3)
  1. TEMOZOLOMIDE [Suspect]
     Dosage: 300 MG DAY 1 TO 5 PO
     Route: 048
     Dates: start: 20080428, end: 20080502
  2. VELCADE [Suspect]
     Dosage: 2.2 M DAY 2,5,9 AND 12 IV BOLUS
     Route: 040
     Dates: start: 20080429, end: 20080509
  3. FENTANYL TRANSDERMAL SYSTEM [Concomitant]

REACTIONS (2)
  - ABDOMINAL PAIN [None]
  - CONSTIPATION [None]
